FAERS Safety Report 8557531-2 (Version None)
Quarter: 2012Q3

REPORT INFORMATION
  Report Type: 
  Country: None (occurrence: None)
  Receive Date: 20120801
  Receipt Date: 20120726
  Transmission Date: 20120928
  Serious: Yes (Hospitalization, Other)
  Sender: FDA-Public Use
  Company Number: US-PFIZER INC-2012088880

PATIENT
  Sex: Female
  Weight: 88.435 kg

DRUGS (4)
  1. TOPAMAX [Concomitant]
     Indication: CONVULSION
     Dosage: UNK
  2. LYRICA [Suspect]
     Indication: NERVE COMPRESSION
     Dosage: 150 MG, 2X/DAY
     Route: 048
     Dates: end: 20120303
  3. HYDROCODONE [Concomitant]
     Dosage: UNK
  4. LYRICA [Suspect]
     Dosage: 150 MG, 2X/DAY
     Route: 048
     Dates: start: 20120101, end: 20120601

REACTIONS (8)
  - CHEST PAIN [None]
  - DYSPNOEA [None]
  - NERVE COMPRESSION [None]
  - PAIN IN EXTREMITY [None]
  - IMPAIRED WORK ABILITY [None]
  - MIGRAINE [None]
  - BACK PAIN [None]
  - PAIN [None]
